FAERS Safety Report 17387755 (Version 2)
Quarter: 2021Q2

REPORT INFORMATION
  Report Type: Spontaneous
  Country: US (occurrence: US)
  Receive Date: 20200206
  Receipt Date: 20210521
  Transmission Date: 20210716
  Serious: No
  Sender: FDA-Public Use
  Company Number: US-RADIUS HEALTH INC.-2020US000078

PATIENT
  Age: 51 Year
  Sex: Female

DRUGS (6)
  1. VAGIFEM [Concomitant]
     Active Substance: ESTRADIOL
     Indication: PRODUCT USED FOR UNKNOWN INDICATION
  2. XANAX [Concomitant]
     Active Substance: ALPRAZOLAM
     Indication: PRODUCT USED FOR UNKNOWN INDICATION
  3. TYMLOS [Suspect]
     Active Substance: ABALOPARATIDE
     Indication: OSTEOPOROSIS POSTMENOPAUSAL
     Dosage: 80 MCG, QD
     Route: 058
     Dates: start: 20191212
  4. PROMETRIUM [Concomitant]
     Active Substance: PROGESTERONE
     Indication: PRODUCT USED FOR UNKNOWN INDICATION
  5. LORATADINE. [Concomitant]
     Active Substance: LORATADINE
     Indication: PRODUCT USED FOR UNKNOWN INDICATION
  6. TYMLOS [Suspect]
     Active Substance: ABALOPARATIDE
     Indication: SENILE OSTEOPOROSIS

REACTIONS (4)
  - Headache [Not Recovered/Not Resolved]
  - Nausea [Unknown]
  - Fatigue [Unknown]
  - Pelvic discomfort [Unknown]

NARRATIVE: CASE EVENT DATE: 201912
